FAERS Safety Report 6570104-6 (Version None)
Quarter: 2010Q2

REPORT INFORMATION
  Report Type: 
  Country: None (occurrence: None)
  Receive Date: 20100204
  Receipt Date: 20100125
  Transmission Date: 20101027
  Serious: Yes (Hospitalization, Other)
  Sender: FDA-Public Use
  Company Number: US-BAXTER-2009BH019910

PATIENT
  Age: 58 Year
  Sex: Female
  Weight: 89 kg

DRUGS (8)
  1. ARTISS [Suspect]
     Indication: FACE LIFT
     Route: 065
     Dates: start: 20091215, end: 20091215
  2. OTHER ANTIDEPRESSANTS [Concomitant]
     Indication: DEPRESSION
     Route: 048
     Dates: start: 20091211
  3. XANAX [Concomitant]
     Indication: INSOMNIA
     Route: 048
     Dates: start: 20091211
  4. METHYLPREDNISOLONE [Concomitant]
     Indication: INFECTION PROPHYLAXIS
     Route: 048
     Dates: start: 20091222, end: 20091201
  5. CEFAZOLIN [Concomitant]
     Route: 042
     Dates: start: 20091229
  6. LACTATED RINGER'S [Concomitant]
     Route: 042
     Dates: start: 20091229
  7. AMOXICILLIN [Concomitant]
  8. TRAMADOL [Concomitant]

REACTIONS (1)
  - WOUND ABSCESS [None]
